FAERS Safety Report 5108748-0 (Version None)
Quarter: 2006Q3

REPORT INFORMATION
  Report Type: 
  Country: None (occurrence: None)
  Receive Date: 20060915
  Receipt Date: 20060915
  Transmission Date: 20061208
  Serious: No
  Sender: FDA-Public Use
  Company Number: None

PATIENT
  Sex: Female
  Weight: 49 kg

DRUGS (2)
  1. CARBOPLATIN [Suspect]
     Dosage: 686 MG
  2. TAXOL [Suspect]
     Dosage: 254 MG

REACTIONS (2)
  - DRUG TOXICITY [None]
  - NEUTROPHIL COUNT DECREASED [None]
